FAERS Safety Report 20013329 (Version 1)
Quarter: 2021Q4

REPORT INFORMATION
  Report Type: Spontaneous
  Country: BR (occurrence: BR)
  Receive Date: 20211029
  Receipt Date: 20211029
  Transmission Date: 20220303
  Serious: Yes (Other)
  Sender: FDA-Public Use
  Company Number: BR-MERCK HEALTHCARE KGAA-9274477

PATIENT
  Age: 52 Year
  Sex: Male

DRUGS (1)
  1. BAVENCIO [Suspect]
     Active Substance: AVELUMAB
     Indication: Neuroendocrine carcinoma of the skin
     Dosage: 6 CYCLES FOR ABOUT 3 MONTHS

REACTIONS (3)
  - Breast injury [Unknown]
  - Eye injury [Unknown]
  - Disease progression [Unknown]
